FAERS Safety Report 5203815-5 (Version None)
Quarter: 2007Q1

REPORT INFORMATION
  Report Type: 
  Country: None (occurrence: None)
  Receive Date: 20070105
  Receipt Date: 20061215
  Transmission Date: 20070707
  Serious: Yes (Hospitalization)
  Sender: FDA-Public Use
  Company Number: 2006SP008612

PATIENT
  Age: 42 Year
  Sex: Female
  Weight: 59.8748 kg

DRUGS (7)
  1. PEG-INTRON [Suspect]
     Indication: HEPATITIS C
     Dosage: 0.33 ML;QW;SC
     Route: 058
     Dates: start: 20060620, end: 20061210
  2. REBETOL [Suspect]
     Indication: HEPATITIS C
     Dosage: SEE IMAGE
     Route: 048
     Dates: end: 20061213
  3. REBETOL [Suspect]
     Indication: HEPATITIS C
     Dosage: SEE IMAGE
     Route: 048
     Dates: start: 20060620
  4. TYLENOL EXTRA-STRENGTH [Concomitant]
  5. LEXAPRO [Concomitant]
  6. PHENERGAN [Concomitant]
  7. TRAZODONE HCL [Concomitant]

REACTIONS (6)
  - CONSTIPATION [None]
  - FAECAL INCONTINENCE [None]
  - SUPERIOR MESENTERIC ARTERY SYNDROME [None]
  - URINARY INCONTINENCE [None]
  - VOMITING [None]
  - WEIGHT DECREASED [None]
